FAERS Safety Report 11859777 (Version 2)
Quarter: 2016Q2

REPORT INFORMATION
  Report Type: Spontaneous
  Country: ES (occurrence: ES)
  Receive Date: 20151222
  Receipt Date: 20160407
  Transmission Date: 20160815
  Serious: Yes (Other)
  Sender: FDA-Public Use
  Company Number: ES-AMGEN-ESPSP2015135762

PATIENT
  Age: 76 Year
  Sex: Female

DRUGS (13)
  1. ENANTYUM [Concomitant]
     Active Substance: DEXKETOPROFEN TROMETAMOL
     Indication: PAIN
     Dosage: 25 MG, AS NECESSARY EVERY EIGHT HOURS
  2. DOLOTREN                           /00372302/ [Concomitant]
  3. OSSEOR [Concomitant]
     Dosage: 2 G, ONE SACHET AT BEDTIME, AT LEAST 2 HOURS AFTER DINNER
  4. XICIL [Concomitant]
     Dosage: ONE SACHET BEFORE LUNCH
  5. ZALDIAR [Concomitant]
     Active Substance: ACETAMINOPHEN\TRAMADOL HYDROCHLORIDE
     Indication: PAIN
     Dosage: 325/37.5 MG, EVERY 8 HOURS, AS NECESSARY
  6. PROLIA [Suspect]
     Active Substance: DENOSUMAB
     Indication: OSTEOPOROSIS
     Dosage: 60 MG, Q6MO
     Route: 058
     Dates: start: 201207
  7. NOLOTIL                            /00473101/ [Concomitant]
     Active Substance: METAMIZOLE
     Indication: PAIN
  8. OMEPRAZOLE. [Concomitant]
     Active Substance: OMEPRAZOLE
     Dosage: 20 MG, QD
  9. DELTIUS [Concomitant]
     Dosage: 25000 IU, ONE AMPULE MONTHLY
  10. NOCTAMID [Concomitant]
     Active Substance: LORMETAZEPAM
     Indication: INSOMNIA
     Dosage: UNK
  11. IDEOS UNIDIA [Concomitant]
     Dosage: ONE SACHET WITH BREAKFAST.
  12. HIDROFEROL [Concomitant]
     Active Substance: CALCIFEDIOL
     Dosage: 16000 IU, ONE AMPULE MONTHLY
  13. MYOLASTAN [Concomitant]
     Active Substance: TETRAZEPAM
     Dosage: HALF TABLET WITH BREAKFAST AND LUNCH AND ONE AT BEDTIME, AS NECESSARY

REACTIONS (4)
  - Red blood cell sedimentation rate increased [Unknown]
  - Pain [Unknown]
  - Activities of daily living impaired [Unknown]
  - Osteonecrosis of jaw [Unknown]

NARRATIVE: CASE EVENT DATE: 201405
